FAERS Safety Report 10226346 (Version 4)
Quarter: 2014Q4

REPORT INFORMATION
  Report Type: Report from Study
  Country: BR (occurrence: BR)
  Receive Date: 20140609
  Receipt Date: 20141111
  Transmission Date: 20150528
  Serious: Yes (Hospitalization)
  Sender: FDA-Public Use
  Company Number: BR-ABBVIE-14P-020-1242832-00

PATIENT
  Age: 36 Year
  Sex: Male
  Weight: 58 kg

DRUGS (8)
  1. MODURETIC 5-50 [Concomitant]
     Active Substance: AMILORIDE HYDROCHLORIDE\HYDROCHLOROTHIAZIDE
     Indication: HYPERTENSION
     Route: 048
     Dates: start: 2006
  2. HUMIRA [Suspect]
     Active Substance: ADALIMUMAB
     Indication: PSORIASIS
     Dosage: ONCE
     Route: 058
     Dates: start: 201312, end: 201312
  3. HUMIRA [Suspect]
     Active Substance: ADALIMUMAB
     Route: 058
     Dates: start: 20140115
  4. LOSARTAN [Concomitant]
     Active Substance: LOSARTAN
     Indication: HYPERTENSION
     Route: 048
     Dates: start: 2008
  5. HUMIRA [Suspect]
     Active Substance: ADALIMUMAB
     Route: 058
     Dates: end: 201405
  6. HUMIRA [Suspect]
     Active Substance: ADALIMUMAB
     Dosage: AFTER 7 DAYS OF INITIAL DOSE, ONCE
     Route: 058
  7. UNKNOWN MEDICATION [Concomitant]
     Active Substance: UNSPECIFIED INGREDIENT
     Indication: ANTICOAGULANT THERAPY
     Dosage: ONCE DAILY, AT NIGHT
     Route: 058
     Dates: start: 20140520
  8. HYDROCHLOROTHIAZIDE. [Concomitant]
     Active Substance: HYDROCHLOROTHIAZIDE
     Indication: HYPERTENSION
     Dosage: IN THE MORNING
     Route: 048
     Dates: start: 20100602

REACTIONS (16)
  - Chills [Not Recovered/Not Resolved]
  - Spleen disorder [Recovering/Resolving]
  - Hypophagia [Not Recovered/Not Resolved]
  - Tremor [Recovering/Resolving]
  - Pyrexia [Not Recovered/Not Resolved]
  - Hyperhidrosis [Not Recovered/Not Resolved]
  - Autoimmune thyroiditis [Recovering/Resolving]
  - Pyrexia [Not Recovered/Not Resolved]
  - Abdominal pain [Recovering/Resolving]
  - Leptospirosis [Not Recovered/Not Resolved]
  - Liver disorder [Recovering/Resolving]
  - Lung disorder [Recovering/Resolving]
  - Gastric disorder [Recovering/Resolving]
  - Pain in extremity [Not Recovered/Not Resolved]
  - Weight decreased [Unknown]
  - Speech disorder [Unknown]

NARRATIVE: CASE EVENT DATE: 2014
